FAERS Safety Report 14723105 (Version 2)
Quarter: 2018Q2

REPORT INFORMATION
  Report Type: Other
  Country: None (occurrence: US)
  Receive Date: 20180405
  Receipt Date: 20180507
  Transmission Date: 20180711
  Serious: Yes (Other)
  Sender: FDA-Public Use
  Company Number: US-MEDAC PHARMA, INC.-2045170

PATIENT
  Age: 8 Decade
  Sex: Male

DRUGS (2)
  1. ACITRETIN. [Concomitant]
     Active Substance: ACITRETIN
  2. METHOTREXATE. [Suspect]
     Active Substance: METHOTREXATE
     Indication: ERYTHRODERMIC PSORIASIS

REACTIONS (1)
  - Lymphoproliferative disorder [Recovering/Resolving]
